FAERS Safety Report 5934504-7 (Version None)
Quarter: 2008Q4

REPORT INFORMATION
  Report Type: 
  Country: None (occurrence: None)
  Receive Date: 20081029
  Receipt Date: 20081016
  Transmission Date: 20090506
  Serious: Yes (Hospitalization)
  Sender: FDA-Public Use
  Company Number: AU-ELI_LILLY_AND_COMPANY-AU200809003941

PATIENT
  Sex: Male

DRUGS (5)
  1. CYMBALTA [Suspect]
     Indication: MAJOR DEPRESSION
     Dosage: 60 MG, DAILY (1/D)
     Route: 065
     Dates: start: 20080816, end: 20080917
  2. NORSPAN [Concomitant]
     Indication: PAIN
     Dosage: 40 UG, UNKNOWN
     Route: 065
     Dates: start: 20080401
  3. VALIUM [Concomitant]
     Indication: DEPRESSION
     Dosage: 10 MG, UNKNOWN
     Route: 065
     Dates: start: 20070101
  4. LYRICA [Concomitant]
     Indication: PAIN
     Dosage: 900 MG, UNKNOWN
     Route: 065
     Dates: start: 20080401
  5. SEROQUEL [Concomitant]
     Indication: DEPRESSION
     Dosage: 200 MG, UNKNOWN
     Route: 065
     Dates: start: 20070101

REACTIONS (2)
  - GENERALISED OEDEMA [None]
  - URINARY RETENTION [None]
